FAERS Safety Report 18550181 (Version 1)
Quarter: 2020Q4

REPORT INFORMATION
  Report Type: Spontaneous
  Country: US (occurrence: US)
  Receive Date: 20201126
  Receipt Date: 20201126
  Transmission Date: 20210114
  Serious: No
  Sender: FDA-Public Use
  Company Number: US-TEVA-2020-US-1853674

PATIENT
  Sex: Female

DRUGS (1)
  1. AUSTEDO [Suspect]
     Active Substance: DEUTETRABENAZINE
     Indication: TARDIVE DYSKINESIA
     Dosage: 12 MILLIGRAM DAILY; ONE IN THE MORNING AND ONE IN THE EVENING
     Route: 048
     Dates: start: 2020

REACTIONS (2)
  - Drug ineffective [Unknown]
  - Dyspepsia [Unknown]

NARRATIVE: CASE EVENT DATE: 2020
